FAERS Safety Report 8599682-2 (Version None)
Quarter: 2012Q3

REPORT INFORMATION
  Report Type: 
  Country: None (occurrence: None)
  Receive Date: 20120816
  Receipt Date: 20120807
  Transmission Date: 20120928
  Serious: Yes (Hospitalization, Other)
  Sender: FDA-Public Use
  Company Number: MX-BRISTOL-MYERS SQUIBB COMPANY-16674053

PATIENT
  Age: 51 Year
  Sex: Male
  Weight: 74 kg

DRUGS (4)
  1. IRBESARTAN AND HYDROCHLOROTHIAZIDE [Suspect]
     Indication: HYPERTENSION
     Dosage: 1 DF: TAB,SEP11-APR12, 300MG+12.5MG TABS FROM APR12-ONG
     Route: 048
     Dates: start: 20110901
  2. HUMALOG [Concomitant]
     Indication: TYPE 2 DIABETES MELLITUS
     Dosage: INSULIN LISPRO + INSULIN LISPRO PROTAMIN(25% + 75% INJECTABLE)
     Route: 048
     Dates: start: 20120401
  3. METFORMIN HCL [Suspect]
     Indication: TYPE 2 DIABETES MELLITUS
     Dosage: 1 DF : 2MG + 1000MGTAB,AMARYL M,SEP11-APR12,4MG+1000MG TABS FROM APR12-ONG
     Route: 048
     Dates: start: 20110901
  4. AMARYL [Suspect]
     Indication: TYPE 2 DIABETES MELLITUS
     Dosage: 1 DF : 2MG + 1000MGTAB,AMARYL M,SEP11-APR12,4MG+1000MG TABS FROM APR12-ONG
     Route: 048
     Dates: start: 20110901

REACTIONS (4)
  - DIABETIC RETINOPATHY [None]
  - EYE DISORDER [None]
  - HYPERGLYCAEMIA [None]
  - VISION BLURRED [None]
